FAERS Safety Report 4322289-X (Version None)
Quarter: 2004Q1

REPORT INFORMATION
  Report Type: 
  Country: None (occurrence: None)
  Receive Date: 20040322
  Receipt Date: 20040322
  Transmission Date: 20041129
  Serious: Yes (Hospitalization)
  Sender: FDA-Public Use
  Company Number: None

PATIENT
  Age: 63 Year
  Sex: Female
  Weight: 57.1532 kg

DRUGS (9)
  1. D-MPH 5 MG CELGENE [Suspect]
     Dosage: 15 MG PO BID
     Route: 048
     Dates: start: 20030910
  2. DECADRON [Concomitant]
  3. ZOLOFT [Concomitant]
  4. DETROL LA [Concomitant]
  5. XANAX [Concomitant]
  6. CELEBRAX [Concomitant]
  7. AMBIEN [Concomitant]
  8. DIFLUCAN [Concomitant]
  9. CIPRO [Concomitant]

REACTIONS (5)
  - AGITATION [None]
  - DISORIENTATION [None]
  - MENTAL STATUS CHANGES [None]
  - THROMBOCYTOPENIA [None]
  - URINARY TRACT INFECTION [None]
